FAERS Safety Report 4483354-X (Version None)
Quarter: 2004Q4

REPORT INFORMATION
  Report Type: 
  Country: None (occurrence: None)
  Receive Date: 20041020
  Receipt Date: 20041004
  Transmission Date: 20050328
  Serious: Yes (Hospitalization)
  Sender: FDA-Public Use
  Company Number: GBT040701514

PATIENT
  Age: 83 Year
  Sex: Female
  Weight: 45 kg

DRUGS (7)
  1. TERIPARATIDE [Suspect]
     Indication: OSTEOPOROSIS
     Dosage: 20 UG/1 DAY
     Dates: start: 20030916
  2. LOSEC (OMEPRAZOLE MAGNESIUM) [Concomitant]
  3. FUROSEMIDE [Concomitant]
  4. LISINOPRIL [Concomitant]
  5. CO-DYDRAMOL [Concomitant]
  6. PARACETAMOL [Concomitant]
  7. CALCICHEW D3 FORTE [Concomitant]

REACTIONS (3)
  - CARDIAC FAILURE CONGESTIVE [None]
  - CONDITION AGGRAVATED [None]
  - LEFT VENTRICULAR FAILURE [None]
